FAERS Safety Report 7007633-7 (Version None)
Quarter: 2010Q3

REPORT INFORMATION
  Report Type: 
  Country: None (occurrence: None)
  Receive Date: 20100922
  Receipt Date: 20100913
  Transmission Date: 20110219
  Serious: Yes (Other)
  Sender: FDA-Public Use
  Company Number: JP-PFIZER INC-2010115226

PATIENT
  Age: 81 Year
  Sex: Male

DRUGS (2)
  1. LIPITOR [Suspect]
     Dosage: UNK
     Route: 048
     Dates: end: 20100816
  2. GRAMALIL [Suspect]
     Dosage: UNK
     Route: 048

REACTIONS (1)
  - HYPOGLYCAEMIA [None]
